FAERS Safety Report 15005210 (Version 2)
Quarter: 2018Q3

REPORT INFORMATION
  Report Type: Spontaneous
  Country: US (occurrence: US)
  Receive Date: 20180613
  Receipt Date: 20180814
  Transmission Date: 20181010
  Serious: No
  Sender: FDA-Public Use
  Company Number: US-ALKERMES INC.-ALK-2018-003045

PATIENT
  Age: 40 Year
  Sex: Male
  Weight: 132.88 kg

DRUGS (2)
  1. ZYRTEC [Concomitant]
     Active Substance: CETIRIZINE HYDROCHLORIDE
     Indication: PRODUCT USED FOR UNKNOWN INDICATION
  2. ARISTADA [Suspect]
     Active Substance: ARIPIPRAZOLE LAUROXIL
     Indication: SCHIZOPHRENIA
     Dosage: 441 MG, QMO
     Route: 030
     Dates: start: 20180423, end: 20180530

REACTIONS (7)
  - Mania [Unknown]
  - Tachyphrenia [Recovered/Resolved]
  - Fatigue [Unknown]
  - Insomnia [Recovered/Resolved]
  - Off label use [Not Recovered/Not Resolved]
  - Agitation [Unknown]
  - Headache [Not Recovered/Not Resolved]

NARRATIVE: CASE EVENT DATE: 201804
